FAERS Safety Report 8063832-7 (Version None)
Quarter: 2012Q1

REPORT INFORMATION
  Report Type: 
  Country: None (occurrence: None)
  Receive Date: 20120123
  Receipt Date: 20120113
  Transmission Date: 20120608
  Serious: Yes (Hospitalization)
  Sender: FDA-Public Use
  Company Number: FR-MERCK-1201FRA00040

PATIENT
  Age: 63 Year
  Sex: Male

DRUGS (10)
  1. ATAZANAVIR SULFATE [Suspect]
     Indication: HIV INFECTION
     Route: 048
     Dates: start: 20090427
  2. ACEBUTOLOL HYDROCHLORIDE [Concomitant]
     Route: 048
  3. RITONAVIR [Suspect]
     Indication: HIV INFECTION
     Route: 048
     Dates: start: 20090427
  4. PRAVASTATIN SODIUM [Concomitant]
     Route: 048
  5. EFAVIRENZ [Suspect]
     Indication: HIV INFECTION
     Route: 048
     Dates: start: 20090427
  6. ASPIRIN LYSINE [Concomitant]
     Route: 048
  7. ISENTRESS [Suspect]
     Indication: HIV INFECTION
     Route: 048
     Dates: start: 20090427, end: 20111209
  8. ASPIRIN LYSINE [Concomitant]
     Route: 048
  9. SULFAMETHOXAZOLE AND TRIMETHOPRIM [Concomitant]
     Route: 048
     Dates: end: 20090801
  10. CLOPIDOGREL BISULFATE [Concomitant]
     Route: 048

REACTIONS (7)
  - GENERAL PHYSICAL HEALTH DETERIORATION [None]
  - CYTOLYTIC HEPATITIS [None]
  - TUBULOINTERSTITIAL NEPHRITIS [None]
  - EOSINOPHILIA [None]
  - GLOMERULONEPHRITIS MEMBRANOUS [None]
  - CHOLESTASIS [None]
  - NEPHROTIC SYNDROME [None]
